FAERS Safety Report 21332702 (Version 1)
Quarter: 2022Q3

REPORT INFORMATION
  Report Type: Report from Study
  Country: BE (occurrence: BE)
  Receive Date: 20220914
  Receipt Date: 20220914
  Transmission Date: 20221026
  Serious: Yes (Hospitalization, Other)
  Sender: FDA-Public Use
  Company Number: BE-Accord-277182

PATIENT
  Age: 40 Year
  Sex: Male

DRUGS (9)
  1. QUETIAPINE FUMARATE [Interacting]
     Active Substance: QUETIAPINE FUMARATE
     Indication: Illness
  2. ACETAMINOPHEN [Suspect]
     Active Substance: ACETAMINOPHEN
  3. COBICISTAT\ELVITEGRAVIR\EMTRICITABINE\TENOFOVIR [Interacting]
     Active Substance: COBICISTAT\ELVITEGRAVIR\EMTRICITABINE\TENOFOVIR
     Dosage: 150MG/150MG/200MG/10MG PER TABLET
     Route: 048
  4. ALPRAZOLAM [Interacting]
     Active Substance: ALPRAZOLAM
     Indication: Illness
  5. VENLAFAXINE [Interacting]
     Active Substance: VENLAFAXINE HYDROCHLORIDE
     Indication: Illness
  6. VALPROIC ACID [Concomitant]
     Active Substance: VALPROIC ACID
     Indication: Illness
  7. TRAZODONE [Concomitant]
     Active Substance: TRAZODONE HYDROCHLORIDE
     Indication: Illness
  8. LORAZEPAM [Concomitant]
     Active Substance: LORAZEPAM
     Indication: Illness
  9. OLANZAPINE [Concomitant]
     Active Substance: OLANZAPINE
     Indication: Illness

REACTIONS (11)
  - Loss of consciousness [Unknown]
  - Hypotension [Unknown]
  - Renal impairment [Unknown]
  - Lactic acidosis [Unknown]
  - Myocardial infarction [Unknown]
  - Poisoning [Unknown]
  - Drug interaction [Unknown]
  - Overdose [Unknown]
  - Intentional product misuse [Unknown]
  - Hyperhidrosis [Unknown]
  - Circulatory collapse [Unknown]
